FAERS Safety Report 15227909 (Version 1)
Quarter: 2018Q3

REPORT INFORMATION
  Report Type: Spontaneous
  Country: FR (occurrence: FR)
  Receive Date: 20180801
  Receipt Date: 20180801
  Transmission Date: 20181010
  Serious: Yes (Hospitalization)
  Sender: FDA-Public Use
  Company Number: FR-PFIZER INC-2018300793

PATIENT
  Age: 71 Year
  Sex: Male

DRUGS (4)
  1. BCG [Suspect]
     Active Substance: BCG VACCINE
     Indication: BLADDER CANCER
     Dosage: UNK
     Route: 043
     Dates: start: 20180308, end: 20180419
  2. AUGMENTIN [Suspect]
     Active Substance: AMOXICILLIN\CLAVULANATE POTASSIUM
     Indication: INFECTION
     Dosage: 3 G, ONCE A DAY
     Route: 048
     Dates: start: 20180421
  3. COLCHICINE. [Suspect]
     Active Substance: COLCHICINE
     Indication: GOUT
     Dosage: UNK
     Route: 048
     Dates: start: 20180422
  4. TAHOR [Suspect]
     Active Substance: ATORVASTATIN CALCIUM
     Indication: DYSLIPIDAEMIA
     Dosage: 10 MG, ONCE A DAY
     Route: 048

REACTIONS (3)
  - Conjunctivitis [Recovering/Resolving]
  - Arthralgia [Recovering/Resolving]
  - Demyelinating polyneuropathy [Recovering/Resolving]

NARRATIVE: CASE EVENT DATE: 201804
